FAERS Safety Report 8425179-6 (Version None)
Quarter: 2012Q2

REPORT INFORMATION
  Report Type: 
  Country: None (occurrence: None)
  Receive Date: 20120531
  Receipt Date: 20120518
  Transmission Date: 20120825
  Serious: Yes (Other)
  Sender: FDA-Public Use
  Company Number: HRA-CDB20120156

PATIENT
  Sex: Female

DRUGS (1)
  1. ELLAONE 30 MG TABLET (ELLAONE) (ULIPRISTAL ACETATE) [Suspect]
     Indication: CONTRACEPTION

REACTIONS (2)
  - MATERNAL EXPOSURE DURING PREGNANCY [None]
  - INAPPROPRIATE SCHEDULE OF DRUG ADMINISTRATION [None]
